FAERS Safety Report 11003119 (Version 1)
Quarter: 2015Q2

REPORT INFORMATION
  Report Type: Spontaneous
  Country: US (occurrence: None)
  Receive Date: 20150408
  Receipt Date: 20150408
  Transmission Date: 20150821
  Serious: Yes (Hospitalization)
  Sender: FDA-Public Use
  Company Number: None

PATIENT
  Age: 61 Year
  Sex: Male
  Weight: 90.18 kg

DRUGS (16)
  1. SOLU-MEDROL [Suspect]
     Active Substance: METHYLPREDNISOLONE SODIUM SUCCINATE
     Dosage: DAYS 1TO5, 1 G
     Route: 042
     Dates: start: 20140407, end: 20140411
  2. GABAPENTIN. [Concomitant]
     Active Substance: GABAPENTIN
  3. MELOXICAM. [Concomitant]
     Active Substance: MELOXICAM
  4. MIRALAX [Concomitant]
     Active Substance: POLYETHYLENE GLYCOL 3350
  5. TIZANIDINE (TIZANIDINE) [Concomitant]
     Active Substance: TIZANIDINE
  6. TRAZODONE [Concomitant]
     Active Substance: TRAZODONE HYDROCHLORIDE
  7. ALEMTUZUMAB [Suspect]
     Active Substance: ALEMTUZUMAB
     Indication: MULTIPLE SCLEROSIS
     Dosage: DAY1TO5 10MG/ML (1.2ML)?
     Route: 042
     Dates: start: 20140407, end: 20140411
  8. RISPERIDONE. [Concomitant]
     Active Substance: RISPERIDONE
  9. VITAMIN D3 [Concomitant]
     Active Substance: CHOLECALCIFEROL
  10. CLONAZEPAM. [Concomitant]
     Active Substance: CLONAZEPAM
  11. TRAMADOL [Concomitant]
     Active Substance: TRAMADOL
  12. BUSPIRONE [Concomitant]
     Active Substance: BUSPIRONE HYDROCHLORIDE
  13. HYDROCHLOROTHIAZIDE. [Concomitant]
     Active Substance: HYDROCHLOROTHIAZIDE
  14. KLOR-CON [Concomitant]
     Active Substance: POTASSIUM CHLORIDE
  15. STOOL SOFTENER [Concomitant]
     Active Substance: DOCUSATE CALCIUM
  16. CITALOPRAM [Concomitant]
     Active Substance: CITALOPRAM HYDROBROMIDE

REACTIONS (1)
  - Rotavirus infection [None]

NARRATIVE: CASE EVENT DATE: 20141222
